FAERS Safety Report 4284859-7 (Version None)
Quarter: 2004Q1

REPORT INFORMATION
  Report Type: 
  Country: None (occurrence: None)
  Receive Date: 20040204
  Receipt Date: 20040127
  Transmission Date: 20041129
  Serious: Yes (Hospitalization, Other)
  Sender: FDA-Public Use
  Company Number: EE-BRISTOL-MYERS SQUIBB COMPANY-12487955

PATIENT
  Age: 51 Year
  Sex: Female

DRUGS (7)
  1. CARBOPLATIN [Suspect]
     Indication: OVARIAN CANCER
     Route: 042
     Dates: start: 20031222, end: 20031222
  2. PACLITAXEL [Suspect]
     Indication: OVARIAN CANCER
     Route: 042
     Dates: start: 20031222, end: 20031222
  3. INTERFERON GAMMA [Suspect]
     Indication: OVARIAN CANCER
     Dosage: DOSING HELD, MISSED 2 DOSES (26 + 28-DEC)  DOSING = TIW (3 TIMES/WK)
     Route: 058
     Dates: start: 20031222, end: 20031224
  4. TROPISETRON [Concomitant]
     Dates: start: 20031222, end: 20031222
  5. DEXAMETHASONE [Concomitant]
     Dates: start: 20031222, end: 20031222
  6. DIPHENHYDRAMINE HCL [Concomitant]
     Dates: start: 20031222, end: 20031222
  7. CIMETIDINE HCL [Concomitant]
     Dates: start: 20031222, end: 20031222

REACTIONS (3)
  - ABDOMINAL PAIN [None]
  - MYALGIA [None]
  - NEUROPATHIC PAIN [None]
